FAERS Safety Report 4413099-3 (Version None)
Quarter: 2004Q3

REPORT INFORMATION
  Report Type: 
  Country: None (occurrence: None)
  Receive Date: 20040727
  Receipt Date: 20040720
  Transmission Date: 20050211
  Serious: Yes (Other)
  Sender: FDA-Public Use
  Company Number: 2004224322US

PATIENT
  Age: 60 Year
  Sex: Female

DRUGS (6)
  1. ZYVOX [Suspect]
     Indication: STAPHYLOCOCCAL INFECTION
     Dosage: 600 MG, BID, ORAL
     Route: 048
     Dates: start: 20030730, end: 20031015
  2. CLEOCIN HCL [Suspect]
     Indication: STAPHYLOCOCCAL INFECTION
     Dosage: ORAL
     Route: 048
  3. FLAGYL [Suspect]
     Indication: STAPHYLOCOCCAL INFECTION
     Dosage: ORAL
     Route: 048
  4. TEQUIN [Suspect]
     Indication: STAPHYLOCOCCAL INFECTION
     Dosage: 400 MG, QD,
     Dates: start: 20030101
  5. NAFCILLIN (NAFCILLIN) [Suspect]
     Indication: STAPHYLOCOCCAL INFECTION
     Dosage: IV
  6. VANCOMYCIN [Suspect]
     Indication: STAPHYLOCOCCAL INFECTION
     Dosage: IV

REACTIONS (7)
  - DYSAESTHESIA [None]
  - HYPOAESTHESIA [None]
  - LOSS OF PROPRIOCEPTION [None]
  - NERVOUS SYSTEM DISORDER [None]
  - PAIN IN EXTREMITY [None]
  - POSTERIOR TIBIAL NERVE INJURY [None]
  - SPINAL DISORDER [None]
